FAERS Safety Report 5207966-0 (Version None)
Quarter: 2007Q1

REPORT INFORMATION
  Report Type: 
  Country: None (occurrence: None)
  Receive Date: 20070115
  Receipt Date: 20070110
  Transmission Date: 20070707
  Serious: Yes (Hospitalization)
  Sender: FDA-Public Use
  Company Number: US-ELI_LILLY_AND_COMPANY-US200609003641

PATIENT
  Age: 54 Year
  Sex: Male
  Weight: 90.702 kg

DRUGS (1)
  1. ZYPREXA [Suspect]
     Dosage: 20 MG, UNK
     Dates: start: 19960101, end: 20040101

REACTIONS (3)
  - CARDIAC FAILURE CONGESTIVE [None]
  - CARDIAC OPERATION [None]
  - DIABETES MELLITUS [None]
